FAERS Safety Report 10067639 (Version 1)
Quarter: 2014Q2

REPORT INFORMATION
  Report Type: Spontaneous
  Country: DE (occurrence: DE)
  Receive Date: 20140409
  Receipt Date: 20140409
  Transmission Date: 20141212
  Serious: Yes (Other)
  Sender: FDA-Public Use
  Company Number: DE-009507513-1404DEU001037

PATIENT
  Age: 30 Year
  Sex: Female

DRUGS (4)
  1. NUVARING [Suspect]
     Indication: CONTRACEPTION
     Dosage: UNK
     Route: 067
     Dates: start: 2007
  2. OCTENISEPT [Concomitant]
  3. POTASSIUM HYDROXIDE [Concomitant]
  4. RANUNCULUS ACRIS [Concomitant]

REACTIONS (2)
  - Skin neoplasm excision [Not Recovered/Not Resolved]
  - Hypersensitivity [Not Recovered/Not Resolved]
